FAERS Safety Report 14094913 (Version 1)
Quarter: 2017Q4

REPORT INFORMATION
  Report Type: Spontaneous
  Country: US (occurrence: US)
  Receive Date: 20171016
  Receipt Date: 20171016
  Transmission Date: 20180321
  Serious: No
  Sender: FDA-Public Use
  Company Number: US-HERITAGE PHARMACEUTICALS-2016HTG00291

PATIENT
  Sex: Female
  Weight: 92.97 kg

DRUGS (14)
  1. POTASSIUM CL ER [Concomitant]
     Active Substance: POTASSIUM CHLORIDE
     Dosage: 20 MEQ, 1X/DAY
  2. PREDNISONE. [Concomitant]
     Active Substance: PREDNISONE
     Dosage: 1 MG, EVERY 48 HOURS
  3. HYDROCHLOROTHIAZIDE. [Concomitant]
     Active Substance: HYDROCHLOROTHIAZIDE
     Dosage: 25 MG, 2X/DAY
  4. OMEPRAZOLE. [Concomitant]
     Active Substance: OMEPRAZOLE
     Dosage: 40 MG IN THE MORNING AND 20 MG AT NIGHT
  5. SOTALOL. [Concomitant]
     Active Substance: SOTALOL
     Dosage: 80 MG, 2X/DAY
  6. LEVOTHYROXINE. [Concomitant]
     Active Substance: LEVOTHYROXINE
     Dosage: 125 ?G, 1X/DAY MON-SAT
  7. VALSARTAN (MYLAN) [Suspect]
     Active Substance: VALSARTAN
     Dosage: 160 MG, 2X/DAY
     Dates: start: 201604
  8. CANDESARTAN CILEXETIL (SANDOZ) [Suspect]
     Active Substance: CANDESARTAN CILEXETIL
  9. BUSPIRONE [Concomitant]
     Active Substance: BUSPIRONE HYDROCHLORIDE
     Dosage: 20 MG, 3X/DAY
  10. LOSARTAN (APOTEX) [Suspect]
     Active Substance: LOSARTAN
  11. LEFLUNOMIDE. [Suspect]
     Active Substance: LEFLUNOMIDE
     Indication: RHEUMATOID ARTHRITIS
     Dosage: 20 MG, 1X/DAY
     Route: 048
  12. IRBESARTAN (SOLCO HEALTHCARE) [Suspect]
     Active Substance: IRBESARTAN
  13. OMEPRAZOLE. [Concomitant]
     Active Substance: OMEPRAZOLE
     Dosage: 40 MG IN THE MORNING AND 20 MG AT NIGHT
  14. BENICAR [Concomitant]
     Active Substance: OLMESARTAN MEDOXOMIL
     Dosage: 10 MG, 2X/DAY

REACTIONS (7)
  - Diarrhoea [Unknown]
  - Rash [Unknown]
  - Pruritus [Not Recovered/Not Resolved]
  - Hypersensitivity [Unknown]
  - Unevaluable event [Recovered/Resolved]
  - Dizziness [Unknown]
  - Mouth swelling [Unknown]

NARRATIVE: CASE EVENT DATE: 2016
